FAERS Safety Report 8804070 (Version 1)
Quarter: 2012Q4

REPORT INFORMATION
  Report Type: 
  Country: US (occurrence: US)
  Receive Date: 20120924
  Receipt Date: 20120924
  Transmission Date: 20130627
  Serious: Yes (Hospitalization, Other)
  Sender: FDA-Public Use
  Company Number: US-SANOFI-AVENTIS-2012SA067688

PATIENT
  Age: 60 Year
  Sex: Female
  Weight: 107 kg

DRUGS (6)
  1. LANTUS SOLOSTAR [Suspect]
     Indication: DIABETES
     Dosage: Dose:45 unit(s)
     Route: 058
     Dates: start: 2005
  2. SOLOSTAR [Suspect]
     Indication: DIABETES
     Dates: start: 2005
  3. METFORMIN [Concomitant]
     Indication: DIABETES
     Dates: start: 2003
  4. ATENOLOL [Concomitant]
     Indication: CARDIAC DISORDER NOS
     Route: 048
     Dates: start: 2005
  5. PRAVASTATIN [Concomitant]
     Indication: CHOLESTEROL
     Route: 048
     Dates: start: 2005
  6. ISOSORBIDE MONONITRATE [Concomitant]
     Indication: BLOOD PRESSURE
     Route: 048
     Dates: start: 2006

REACTIONS (2)
  - Neoplasm malignant [Unknown]
  - Coronary artery disease [Unknown]
